FAERS Safety Report 19135234 (Version 1)
Quarter: 2021Q2

REPORT INFORMATION
  Report Type: Spontaneous
  Country: CZ (occurrence: CZ)
  Receive Date: 20210414
  Receipt Date: 20210414
  Transmission Date: 20210717
  Serious: Yes (Other)
  Sender: FDA-Public Use
  Company Number: CZ-MYLANLABS-2021M1021824

PATIENT
  Age: 55 Year
  Sex: Male

DRUGS (3)
  1. CETIRIZINE [Concomitant]
     Active Substance: CETIRIZINE HYDROCHLORIDE
     Dosage: UNK
  2. BISOPROLOL [Suspect]
     Active Substance: BISOPROLOL
     Indication: HYPERTENSION
     Dosage: 5 MILLIGRAM, QD
  3. AMLODIPINE [Suspect]
     Active Substance: AMLODIPINE BESYLATE
     Indication: HYPERTENSION
     Dosage: 10 MILLIGRAM, QD

REACTIONS (8)
  - Erectile dysfunction [Unknown]
  - Left ventricular hypertrophy [Unknown]
  - Microalbuminuria [Unknown]
  - Product dose omission issue [Unknown]
  - Joint swelling [Unknown]
  - Treatment noncompliance [Unknown]
  - Diastolic dysfunction [Unknown]
  - Headache [Unknown]
